FAERS Safety Report 24319801 (Version 1)
Quarter: 2024Q3

REPORT INFORMATION
  Report Type: Spontaneous
  Country: NL (occurrence: NL)
  Receive Date: 20240914
  Receipt Date: 20240914
  Transmission Date: 20241017
  Serious: Yes (Other)
  Sender: TEVA
  Company Number: NL-EMA-DD-20240828-7482829-115826

PATIENT
  Age: 9 Year
  Sex: Male

DRUGS (11)
  1. METOCLOPRAMIDE [Suspect]
     Active Substance: METOCLOPRAMIDE
     Indication: Nausea
     Dosage: TIME INTERVAL: AS NECESSARY: 12 MG AS NEEDED (IF NECESSARY)
     Route: 048
  2. MELATONIN [Suspect]
     Active Substance: MELATONIN
     Indication: Autism spectrum disorder
     Route: 048
     Dates: start: 20230320
  3. DESLORATADINE [Suspect]
     Active Substance: DESLORATADINE
     Indication: Asthma
     Dosage: TIME INTERVAL: AS NECESSARY: 2.5 MG AS NEEDED (IF NECESSARY),
     Route: 048
     Dates: start: 20230320
  4. ALBUTEROL [Suspect]
     Active Substance: ALBUTEROL
     Indication: Asthma
     Dosage: TIME INTERVAL: AS NECESSARY: AS NEEDED (1 - 4 DOSES, 8X/DAY, IF NECESSARY)
     Route: 055
  5. ARIPIPRAZOLE [Suspect]
     Active Substance: ARIPIPRAZOLE
     Indication: Autism spectrum disorder
     Route: 048
     Dates: start: 20230331
  6. CHOLECALCIFEROL [Suspect]
     Active Substance: CHOLECALCIFEROL
     Indication: Prophylaxis
     Dosage: 400 P.E
     Route: 048
     Dates: start: 20230320
  7. GRANISETRON [Suspect]
     Active Substance: GRANISETRON
     Indication: Nausea
     Dosage: TIME INTERVAL: AS NECESSARY: 2 MG AS NEEDED (IF NECESSARY)
     Route: 048
     Dates: start: 20230508
  8. POLYETHYLENE GLYCOLS [Suspect]
     Active Substance: POLYETHYLENE GLYCOLS
     Indication: Constipation
     Dosage: 10 - 20 G
     Route: 048
     Dates: start: 20230320
  9. CRIZOTINIB [Suspect]
     Active Substance: CRIZOTINIB
     Indication: Neoplasm malignant
     Dosage: 220 MG 2X/DAY (BID)
     Route: 048
     Dates: start: 20230211, end: 20230523
  10. FLUTICASONE [Suspect]
     Active Substance: FLUTICASONE
     Indication: Asthma
     Dosage: 1 DF (1 DOSE)
     Route: 045
     Dates: start: 20230320
  11. BECLOMETHASONE DIPROPIONATE [Suspect]
     Active Substance: BECLOMETHASONE DIPROPIONATE
     Indication: Asthma
     Dosage: 2 DF 2X/DAY (2 DOSE, 2X/DAY)
     Route: 065
     Dates: start: 20230320

REACTIONS (6)
  - Sinus bradycardia [Not Recovered/Not Resolved]
  - Nausea [Unknown]
  - Cyanosis [Unknown]
  - Constipation [Unknown]
  - Heart rate decreased [Unknown]
  - Electrocardiogram abnormal [Unknown]

NARRATIVE: CASE EVENT DATE: 20230522
